FAERS Safety Report 6593265-1 (Version None)
Quarter: 2010Q1

REPORT INFORMATION
  Report Type: 
  Country: None (occurrence: None)
  Receive Date: 20100222
  Receipt Date: 20100216
  Transmission Date: 20100710
  Serious: Yes (Hospitalization, Other)
  Sender: FDA-Public Use
  Company Number: US-SANOFI-AVENTIS-2009SA010881

PATIENT
  Age: 74 Year
  Sex: Female
  Weight: 79.54 kg

DRUGS (9)
  1. CLOPIDOGREL BISULFATE [Suspect]
     Route: 048
     Dates: start: 20050101, end: 20091220
  2. CLOPIDOGREL BISULFATE [Suspect]
     Indication: STENT PLACEMENT
     Route: 048
     Dates: start: 20050101, end: 20091220
  3. ACTOS [Concomitant]
     Route: 065
  4. DILTIAZEM HCL [Concomitant]
     Indication: BLOOD PRESSURE
     Route: 065
  5. CHOLESTEROL- AND TRIGLYCERIDE REDUCERS [Concomitant]
     Route: 065
  6. VITAMINS [Concomitant]
  7. LOVAZA [Concomitant]
  8. VITAMIN D [Concomitant]
  9. ATENOLOL [Concomitant]
     Indication: TACHYCARDIA

REACTIONS (10)
  - ABDOMINAL PAIN UPPER [None]
  - CONTUSION [None]
  - CORONARY ARTERY OCCLUSION [None]
  - DIARRHOEA [None]
  - DIZZINESS [None]
  - GASTROINTESTINAL HAEMORRHAGE [None]
  - INFREQUENT BOWEL MOVEMENTS [None]
  - MELAENA [None]
  - RENAL PAIN [None]
  - SMALL INTESTINAL OBSTRUCTION [None]
